FAERS Safety Report 21841994 (Version 1)
Quarter: 2023Q1

REPORT INFORMATION
  Report Type: Spontaneous
  Country: GB (occurrence: GB)
  Receive Date: 20230110
  Receipt Date: 20230110
  Transmission Date: 20230418
  Serious: Yes (Hospitalization, Other)
  Sender: FDA-Public Use
  Company Number: None

PATIENT
  Age: 61 Year
  Sex: Male

DRUGS (12)
  1. AMLODIPINE [Suspect]
     Active Substance: AMLODIPINE BESYLATE
     Indication: Product used for unknown indication
     Dosage: EVERY MORNING
  2. DOXAZOSIN [Suspect]
     Active Substance: DOXAZOSIN MESYLATE
     Indication: Product used for unknown indication
  3. BISOPROLOL [Concomitant]
     Active Substance: BISOPROLOL
     Dosage: EVERY MORNING
  4. BUMETANIDE [Concomitant]
     Active Substance: BUMETANIDE
     Dosage: 2 IN THE MORNING, 1 LU
  5. CO-DYDRAMOL [Concomitant]
     Active Substance: ACETAMINOPHEN\DIHYDROCODEINE
     Dosage: 10MG/500MG
  6. DOCUSATE [Concomitant]
     Active Substance: DOCUSATE
  7. GABAPENTIN [Concomitant]
     Active Substance: GABAPENTIN
     Dosage: 100MG 3 TIMES A DAY AND 300MG X2 3 TIMES A DAY
  8. OMEPRAZOLE [Concomitant]
     Active Substance: OMEPRAZOLE
     Dosage: IN THE MORNING
  9. RAMIPRIL [Concomitant]
     Active Substance: RAMIPRIL
     Dosage: 1.25MG IN THE MORNING AND 2.5MG IN THE MORNING
  10. SPIRONOLACTONE [Concomitant]
     Active Substance: SPIRONOLACTONE
     Dosage: IN THE MORNING
  11. POTASSIUM BICARBONATE\SODIUM ALGINATE [Concomitant]
     Active Substance: POTASSIUM BICARBONATE\SODIUM ALGINATE
     Dosage: FOUR TIMES A DAY
  12. WARFARIN [Concomitant]
     Active Substance: WARFARIN
     Dosage: 1MG TABLETS 8MG FRIDAY + 7MG REST OF WEEK

REACTIONS (3)
  - Oedema peripheral [Recovering/Resolving]
  - Cellulitis [Recovered/Resolved]
  - Skin ulcer [Unknown]
